FAERS Safety Report 7827753-4 (Version None)
Quarter: 2011Q4

REPORT INFORMATION
  Report Type: 
  Country: None (occurrence: None)
  Receive Date: 20111020
  Receipt Date: 20111018
  Transmission Date: 20120403
  Serious: No
  Sender: FDA-Public Use
  Company Number: US-B.I. PHARMACEUTICALS,INC./RIDGEFIELD-2011-BP-22924BP

PATIENT
  Sex: Male

DRUGS (31)
  1. PRADAXA [Suspect]
     Indication: CARDIAC DISORDER
     Dosage: 150 MG
     Route: 048
     Dates: end: 20111002
  2. COLACE [Concomitant]
     Indication: LAXATIVE SUPPORTIVE CARE
  3. SARNA SKIN LOTION [Concomitant]
  4. OXYCODONE HCL [Concomitant]
     Indication: PAIN
  5. BETAMETHASONE DIPROPIONATE [Concomitant]
  6. PRADAXA [Suspect]
     Indication: ATRIAL FIBRILLATION
     Dosage: 300 MG
     Route: 048
     Dates: start: 20110801
  7. TERAZOSIN HCL [Concomitant]
     Indication: RENAL DISORDER
  8. CELEBREX [Concomitant]
     Indication: ARTHRITIS
     Dosage: 400 MG
     Route: 048
  9. CENTRUM SILVER MULTIVITAMIN [Concomitant]
  10. HYDROCORTISONE [Concomitant]
  11. POTASSIUM [Concomitant]
     Dosage: 10 MEQ
  12. TERAZOSIN HCL [Concomitant]
     Indication: BENIGN PROSTATIC HYPERPLASIA
     Dosage: 2 MG
  13. SIMVASTATIN [Concomitant]
     Indication: BLOOD CHOLESTEROL INCREASED
     Dosage: 160 MG
  14. WARFARIN SODIUM [Concomitant]
     Dosage: 3.5 MG
     Route: 048
  15. COLACE [Concomitant]
     Indication: CONSTIPATION
     Dosage: 100 MG
     Route: 048
  16. HYDROCODONE BITARTRATE [Concomitant]
     Indication: PAIN
  17. METOPROLOL SUCCINATE [Concomitant]
     Indication: HYPERTENSION
     Dosage: 25 MG
  18. GLUCOSAMINE CHONDROITIN [Concomitant]
     Indication: ARTHRITIS
  19. PROTOPIC [Concomitant]
  20. TYLENOL-500 [Concomitant]
     Dosage: 1300 MG
  21. VITAMIN D CHOLECALCIFEROL [Concomitant]
     Dosage: 400 U
  22. LASIX [Concomitant]
     Indication: FLUID RETENTION
     Dosage: 120 MG
  23. HYDROCODONE BITARTRATE [Concomitant]
     Indication: ARTHRITIS
  24. METOPROLOL SUCCINATE [Concomitant]
     Indication: CARDIAC DISORDER
  25. LISINOPRIL [Concomitant]
     Indication: HYPERTENSION
  26. OXYCODONE HCL [Concomitant]
     Indication: ARTHRITIS
  27. ALEVE [Concomitant]
     Indication: ARTHRITIS
     Dosage: 660 MG
     Route: 048
  28. I-CAP MULTI [Concomitant]
     Indication: EYE DISORDER
  29. PRAMOSONE [Concomitant]
  30. ALCORTIN [Concomitant]
  31. CERAVE MOISTURIZING LOTION [Concomitant]

REACTIONS (2)
  - ABDOMINAL PAIN UPPER [None]
  - INSOMNIA [None]
